FAERS Safety Report 7375166-4 (Version None)
Quarter: 2011Q1

REPORT INFORMATION
  Report Type: 
  Country: None (occurrence: None)
  Receive Date: 20110325
  Receipt Date: 20110315
  Transmission Date: 20110831
  Serious: Yes (Other)
  Sender: FDA-Public Use
  Company Number: DE-ROCHE-757267

PATIENT
  Sex: Female
  Weight: 75 kg

DRUGS (3)
  1. OLMESARTAN MEDOXOMIL AND HYDROCHLOROTHIZIDE [Concomitant]
     Indication: HYPERTENSION
     Route: 048
     Dates: start: 20080314
  2. BONIVA [Suspect]
     Indication: OSTEOPOROSIS
     Route: 042
     Dates: start: 20080610, end: 20090910
  3. OMEPRAZOLE [Concomitant]
     Route: 048
     Dates: start: 20050101

REACTIONS (1)
  - IRIDOCYCLITIS [None]
